FAERS Safety Report 14723546 (Version 1)
Quarter: 2018Q2

REPORT INFORMATION
  Report Type: Spontaneous
  Country: US (occurrence: US)
  Receive Date: 20180405
  Receipt Date: 20180405
  Transmission Date: 20180711
  Serious: Yes (Hospitalization, Disabling)
  Sender: FDA-Public Use
  Company Number: US-JNJFOC-20180401491

PATIENT
  Age: 46 Year
  Sex: Male

DRUGS (1)
  1. INVOKANA [Suspect]
     Active Substance: CANAGLIFLOZIN
     Indication: TYPE 2 DIABETES MELLITUS
     Route: 048
     Dates: start: 20141216

REACTIONS (4)
  - Gangrene [Unknown]
  - Diabetic foot infection [Unknown]
  - Osteomyelitis acute [Unknown]
  - Foot amputation [Unknown]

NARRATIVE: CASE EVENT DATE: 201506
